FAERS Safety Report 8208358-2 (Version None)
Quarter: 2012Q1

REPORT INFORMATION
  Report Type: 
  Country: None (occurrence: None)
  Receive Date: 20120314
  Receipt Date: 20120307
  Transmission Date: 20120608
  Serious: Yes (Other)
  Sender: FDA-Public Use
  Company Number: US-ABBOTT-12P-163-0913038-00

PATIENT
  Sex: Male
  Weight: 73.548 kg

DRUGS (4)
  1. HUMIRA [Suspect]
  2. HUMIRA [Suspect]
  3. HUMIRA [Suspect]
     Indication: CROHN'S DISEASE
     Dates: start: 20080101, end: 20080101
  4. VITAMIN B-12 [Concomitant]
     Indication: LABORATORY TEST ABNORMAL

REACTIONS (1)
  - SKIN PAPILLOMA [None]
